FAERS Safety Report 5448410-8 (Version None)
Quarter: 2007Q3

REPORT INFORMATION
  Report Type: 
  Country: None (occurrence: None)
  Receive Date: 20070906
  Receipt Date: 20070829
  Transmission Date: 20080115
  Serious: Yes (Other)
  Sender: FDA-Public Use
  Company Number: TPA2007A01841

PATIENT

DRUGS (1)
  1. ACTOS [Suspect]

REACTIONS (3)
  - CARDIAC FAILURE CONGESTIVE [None]
  - OEDEMA [None]
  - PULMONARY OEDEMA [None]
